FAERS Safety Report 14349511 (Version 1)
Quarter: 2018Q1

REPORT INFORMATION
  Report Type: Spontaneous
  Country: GB (occurrence: GB)
  Receive Date: 20180104
  Receipt Date: 20180104
  Transmission Date: 20180509
  Serious: Yes (Other)
  Sender: FDA-Public Use
  Company Number: GB-AUROBINDO-AUR-APL-2017-45883

PATIENT
  Sex: Female

DRUGS (4)
  1. IRBESARTAN TABLETS [Suspect]
     Active Substance: IRBESARTAN
     Dosage: UNK
  2. MOTENS [Concomitant]
     Active Substance: LACIDIPINE
     Indication: PRODUCT USE IN UNAPPROVED INDICATION
     Dosage: UNK ()
     Route: 065
  3. MOTENS [Concomitant]
     Active Substance: LACIDIPINE
     Dosage: UNK MG, UNK ()
     Route: 065
  4. IRBESARTAN TABLETS [Suspect]
     Active Substance: IRBESARTAN
     Indication: HYPERTENSION
     Dosage: UNK
     Route: 048

REACTIONS (5)
  - Arrhythmia [Unknown]
  - Heart rate irregular [Unknown]
  - Drug dose omission [Unknown]
  - Product physical issue [Unknown]
  - Wrong drug administered [Unknown]

NARRATIVE: CASE EVENT DATE: 20171113
